FAERS Safety Report 7113426-2 (Version None)
Quarter: 2010Q4

REPORT INFORMATION
  Report Type: 
  Country: None (occurrence: None)
  Receive Date: 20101119
  Receipt Date: 20101109
  Transmission Date: 20110411
  Serious: Yes (Other)
  Sender: FDA-Public Use
  Company Number: CA-JNJCH-2010025903

PATIENT
  Sex: Male

DRUGS (2)
  1. NICOTINE [Suspect]
     Indication: PRODUCT USED FOR UNKNOWN INDICATION
     Dosage: TEXT:UNKNOWN
     Route: 062
  2. CLOZARIL [Suspect]
     Indication: SCHIZOPHRENIA
     Dosage: TEXT:900 MG ^REDUCED TO^ 650 MG DAILY
     Route: 048
     Dates: start: 20060101

REACTIONS (3)
  - DYSKINESIA [None]
  - SPEECH DISORDER [None]
  - TREMOR [None]
